FAERS Safety Report 9417793 (Version 2)
Quarter: 2015Q1

REPORT INFORMATION
  Report Type: Spontaneous
  Country: FR (occurrence: FR)
  Receive Date: 20130724
  Receipt Date: 20150211
  Transmission Date: 20150721
  Serious: Yes (Hospitalization, Other)
  Sender: FDA-Public Use
  Company Number: FR-GLAXOSMITHKLINE-B0909578A

PATIENT
  Age: 12 Year
  Sex: Female

DRUGS (5)
  1. ZOVIRAX [Suspect]
     Active Substance: ACYCLOVIR
     Indication: MENINGOENCEPHALITIS HERPETIC
     Route: 042
     Dates: start: 20130620, end: 20130621
  2. VOGALENE [Concomitant]
     Active Substance: METOPIMAZINE
     Route: 042
     Dates: start: 20130620, end: 20130626
  3. NUBAIN [Concomitant]
     Active Substance: NALBUPHINE HYDROCHLORIDE
     Route: 042
     Dates: start: 20130621, end: 20130621
  4. SPASFON [Concomitant]
     Active Substance: PHLOROGLUCINOL
     Route: 042
     Dates: start: 20130620, end: 20130626
  5. PARACETAMOL [Concomitant]
     Active Substance: ACETAMINOPHEN
     Route: 042
     Dates: start: 20130620, end: 20130701

REACTIONS (3)
  - Acute kidney injury [Recovered/Resolved]
  - Blood creatinine increased [Recovered/Resolved]
  - Anuria [Recovered/Resolved]

NARRATIVE: CASE EVENT DATE: 20130622
